FAERS Safety Report 25445870 (Version 2)
Quarter: 2025Q3

REPORT INFORMATION
  Report Type: Report from Study
  Country: EU (occurrence: EU)
  Receive Date: 20250617
  Receipt Date: 20250717
  Transmission Date: 20251020
  Serious: Yes (Other)
  Sender: CSL BEHRING
  Company Number: EU-BEH-2025209044

PATIENT
  Sex: Female

DRUGS (2)
  1. KORSUVA [Suspect]
     Active Substance: DIFELIKEFALIN ACETATE
     Indication: Chronic kidney disease-associated pruritus
     Route: 042
     Dates: start: 20230908, end: 20241104
  2. KORSUVA [Suspect]
     Active Substance: DIFELIKEFALIN ACETATE
     Route: 042
     Dates: end: 20241117

REACTIONS (1)
  - Renal transplant [Unknown]
